FAERS Safety Report 6931279-X (Version None)
Quarter: 2010Q3

REPORT INFORMATION
  Report Type: 
  Country: None (occurrence: None)
  Receive Date: 20100816
  Receipt Date: 20100809
  Transmission Date: 20110219
  Serious: Yes (Other)
  Sender: FDA-Public Use
  Company Number: 2010SP042476

PATIENT
  Sex: 0

DRUGS (1)
  1. INTRON A [Suspect]
     Indication: MALIGNANT MELANOMA
     Dosage: 3 MIU;TIW
     Dates: start: 20090801, end: 20100801

REACTIONS (2)
  - AUTOIMMUNE THYROIDITIS [None]
  - PULMONARY FIBROSIS [None]
